FAERS Safety Report 24975729 (Version 1)
Quarter: 2025Q1

REPORT INFORMATION
  Report Type: Spontaneous
  Country: DE (occurrence: DE)
  Receive Date: 20250217
  Receipt Date: 20250217
  Transmission Date: 20250408
  Serious: Yes (Other)
  Sender: NOVO NORDISK
  Company Number: DE-NOVOPROD-1368275

PATIENT
  Age: 61 Year
  Sex: Male
  Weight: 106 kg

DRUGS (1)
  1. WEGOVY [Suspect]
     Active Substance: SEMAGLUTIDE
     Indication: Product used for unknown indication

REACTIONS (3)
  - Pancreatic failure [Not Recovered/Not Resolved]
  - Vomiting [Unknown]
  - Accidental overdose [Unknown]

NARRATIVE: CASE EVENT DATE: 20240430
